FAERS Safety Report 13712540 (Version 1)
Quarter: 2017Q3

REPORT INFORMATION
  Report Type: Spontaneous
  Country: US (occurrence: US)
  Receive Date: 20170703
  Receipt Date: 20170703
  Transmission Date: 20171127
  Serious: No
  Sender: FDA-Public Use
  Company Number: US-JNJFOC-20170501059

PATIENT
  Age: 60 Year
  Sex: Female
  Weight: 78.02 kg

DRUGS (1)
  1. STELARA [Suspect]
     Active Substance: USTEKINUMAB
     Indication: CROHN^S DISEASE
     Route: 042
     Dates: start: 20170419

REACTIONS (10)
  - Influenza like illness [Not Recovered/Not Resolved]
  - Agitation [Not Recovered/Not Resolved]
  - Vision blurred [Not Recovered/Not Resolved]
  - Bruxism [Not Recovered/Not Resolved]
  - Asthenia [Not Recovered/Not Resolved]
  - Feeling abnormal [Unknown]
  - Memory impairment [Not Recovered/Not Resolved]
  - Tremor [Not Recovered/Not Resolved]
  - Diarrhoea [Not Recovered/Not Resolved]
  - Drug ineffective [Unknown]

NARRATIVE: CASE EVENT DATE: 201704
